FAERS Safety Report 10565729 (Version 1)
Quarter: 2014Q4

REPORT INFORMATION
  Report Type: Spontaneous
  Country: US (occurrence: None)
  Receive Date: 20141104
  Receipt Date: 20141104
  Transmission Date: 20150529
  Serious: Yes (Life-Threatening, Hospitalization)
  Sender: FDA-Public Use
  Company Number: None

PATIENT
  Age: 71 Year
  Sex: Male
  Weight: 65 kg

DRUGS (1)
  1. LEVOFLOXACIN. [Suspect]
     Active Substance: LEVOFLOXACIN
     Route: 048
     Dates: start: 20130820, end: 20130821

REACTIONS (4)
  - Ventricular fibrillation [None]
  - Palpitations [None]
  - Torsade de pointes [None]
  - Ventricular tachycardia [None]

NARRATIVE: CASE EVENT DATE: 20130821
